FAERS Safety Report 14251319 (Version 3)
Quarter: 2018Q1

REPORT INFORMATION
  Report Type: Report from Study
  Country: US (occurrence: US)
  Receive Date: 20171205
  Receipt Date: 20180215
  Transmission Date: 20180508
  Serious: Yes (Hospitalization)
  Sender: FDA-Public Use
  Company Number: US-SEATTLE GENETICS-2017SGN03064

PATIENT
  Age: 45 Year
  Sex: Female
  Weight: 109.5 kg

DRUGS (7)
  1. DACARBAZINE. [Suspect]
     Active Substance: DACARBAZINE
     Indication: HODGKIN^S DISEASE
     Dosage: 375 MG/M2, Q2WEEKS
     Route: 042
     Dates: start: 20170928, end: 20171122
  2. FOSAPREPITANT [Concomitant]
     Active Substance: FOSAPREPITANT
     Indication: PROPHYLAXIS
     Dosage: 150 MG, UNK
     Dates: start: 20170928
  3. BRENTUXIMAB VEDOTIN [Suspect]
     Active Substance: BRENTUXIMAB VEDOTIN
     Indication: HODGKIN^S DISEASE
     Dosage: 1.2 MG/KG, Q2WEEKS
     Route: 042
     Dates: start: 20170928, end: 20171122
  4. PALONOSETRON. [Concomitant]
     Active Substance: PALONOSETRON HYDROCHLORIDE
     Indication: PROPHYLAXIS
     Dosage: 250 ?G, UNK
     Dates: start: 20170928
  5. DOXORUBICIN [Suspect]
     Active Substance: DOXORUBICIN
     Indication: HODGKIN^S DISEASE
     Dosage: 25 MG/M2, Q2WEEKS
     Route: 042
     Dates: start: 20170928, end: 20171122
  6. VINBLASTINE [Suspect]
     Active Substance: VINBLASTINE
     Indication: HODGKIN^S DISEASE
     Dosage: 6 MG/M2, Q2WEEKS
     Route: 042
     Dates: start: 20170928, end: 20171122
  7. DEXAMETHASONE. [Concomitant]
     Active Substance: DEXAMETHASONE
     Indication: PROPHYLAXIS
     Dosage: 12 MG, UNK
     Dates: start: 20170928

REACTIONS (5)
  - Gastritis [Recovering/Resolving]
  - Nausea [Recovered/Resolved]
  - Vomiting [Recovered/Resolved]
  - Abdominal pain [Recovering/Resolving]
  - Duodenitis [Recovering/Resolving]

NARRATIVE: CASE EVENT DATE: 20171130
